FAERS Safety Report 7773603-4 (Version None)
Quarter: 2011Q3

REPORT INFORMATION
  Report Type: 
  Country: None (occurrence: None)
  Receive Date: 20110923
  Receipt Date: 20110915
  Transmission Date: 20111222
  Serious: Yes (Other)
  Sender: FDA-Public Use
  Company Number: US-BIOGENIDEC-2011BI035670

PATIENT
  Sex: Female

DRUGS (2)
  1. TYSABRI [Suspect]
     Indication: MULTIPLE SCLEROSIS
     Route: 042
     Dates: start: 20090902
  2. TYSABRI [Suspect]
     Route: 042
     Dates: start: 20070705, end: 20080926

REACTIONS (3)
  - CARDIAC FAILURE CONGESTIVE [None]
  - BREAST MASS [None]
  - MUSCLE SPASMS [None]
